FAERS Safety Report 23161236 (Version 1)
Quarter: 2023Q4

REPORT INFORMATION
  Report Type: Spontaneous
  Country: CN (occurrence: CN)
  Receive Date: 20231108
  Receipt Date: 20231108
  Transmission Date: 20240109
  Serious: Yes (Hospitalization, Other)
  Sender: FDA-Public Use
  Company Number: CN-PFIZER INC-PV202300179940

PATIENT
  Age: 6 Year
  Sex: Female
  Weight: 23 kg

DRUGS (8)
  1. CYTARABINE [Suspect]
     Active Substance: CYTARABINE
     Indication: Lymphoma
     Dosage: 0.069 G, 1X/DAY
     Route: 041
     Dates: start: 20230920, end: 20230923
  2. CYTARABINE [Suspect]
     Active Substance: CYTARABINE
     Indication: Prophylactic chemotherapy
     Dosage: 0.069 G, 1X/DAY
     Route: 041
     Dates: start: 20230927, end: 20230930
  3. CYTARABINE [Suspect]
     Active Substance: CYTARABINE
     Dosage: 36 MG
     Route: 037
     Dates: start: 20230927, end: 20230927
  4. METHOTREXATE SODIUM [Suspect]
     Active Substance: METHOTREXATE SODIUM
     Indication: Prophylactic chemotherapy
     Dosage: 12 MG
     Route: 037
     Dates: start: 20230927, end: 20230927
  5. CYCLOPHOSPHAMIDE [Suspect]
     Active Substance: CYCLOPHOSPHAMIDE
     Indication: Lymphoma
     Dosage: 0.92 G, 1X/DAY
     Route: 041
     Dates: start: 20230918, end: 20230918
  6. MERCAPTOPURINE [Suspect]
     Active Substance: MERCAPTOPURINE
     Indication: Lymphoma
     Dosage: 60 MG/M2
     Dates: start: 20230918, end: 20231001
  7. DEXAMETHASONE [Suspect]
     Active Substance: DEXAMETHASONE
     Indication: Prophylactic chemotherapy
     Dosage: 4 MG
     Route: 037
     Dates: start: 20230927, end: 20230927
  8. MESNA [Concomitant]
     Active Substance: MESNA
     Indication: Lymphoma
     Dosage: 0.37 G, 1X/DAY
     Route: 042
     Dates: start: 20230918, end: 20230918

REACTIONS (5)
  - Myelosuppression [Recovered/Resolved]
  - Neutropenic infection [Recovering/Resolving]
  - Pyrexia [Recovered/Resolved]
  - Gingival pain [Unknown]
  - Off label use [Unknown]

NARRATIVE: CASE EVENT DATE: 20230927
